FAERS Safety Report 7941830-9 (Version None)
Quarter: 2011Q4

REPORT INFORMATION
  Report Type: 
  Country: None (occurrence: None)
  Receive Date: 20111122
  Receipt Date: 20111122
  Transmission Date: 20120403
  Serious: No
  Sender: FDA-Public Use
  Company Number: None

PATIENT
  Sex: Female

DRUGS (1)
  1. ENBREL [Suspect]
     Indication: RHEUMATOID ARTHRITIS
     Dosage: 60MG WEEKLY SQ
     Route: 058
     Dates: start: 20110915, end: 20110915

REACTIONS (7)
  - MALAISE [None]
  - FATIGUE [None]
  - NAUSEA [None]
  - FLUSHING [None]
  - FEELING HOT [None]
  - PRURITUS [None]
  - ABDOMINAL PAIN UPPER [None]
